FAERS Safety Report 4651644-3 (Version None)
Quarter: 2005Q2

REPORT INFORMATION
  Report Type: 
  Country: None (occurrence: None)
  Receive Date: 20050404
  Receipt Date: 20041104
  Transmission Date: 20051028
  Serious: No
  Sender: FDA-Public Use
  Company Number: USA041183172

PATIENT
  Age: 68 Year
  Sex: Female
  Weight: 75 kg

DRUGS (7)
  1. CYMBALTA [Suspect]
     Indication: DEPRESSION
     Dosage: 60 MG/1 DAY
     Dates: start: 20040901
  2. CLONAZEPAM [Concomitant]
  3. PREMARIN [Concomitant]
  4. VITAMIN E [Concomitant]
  5. VIT C TAB [Concomitant]
  6. CALCIUM GLUCONATE [Concomitant]
  7. MULTI-VITAMIN [Concomitant]

REACTIONS (2)
  - DYSKINESIA [None]
  - VISION BLURRED [None]
